FAERS Safety Report 7109883-8 (Version None)
Quarter: 2010Q4

REPORT INFORMATION
  Report Type: 
  Country: None (occurrence: None)
  Receive Date: 20101118
  Receipt Date: 20101108
  Transmission Date: 20110411
  Serious: Yes (Death, Hospitalization)
  Sender: FDA-Public Use
  Company Number: DE-SANOFI-AVENTIS-2010SA067575

PATIENT
  Age: 59 Year
  Sex: Female

DRUGS (6)
  1. OXALIPLATIN [Suspect]
     Route: 041
     Dates: start: 20080825, end: 20080825
  2. OXALIPLATIN [Suspect]
     Route: 041
  3. CETUXIMAB [Suspect]
     Route: 041
     Dates: start: 20080811, end: 20080811
  4. CETUXIMAB [Suspect]
     Route: 041
  5. FLUOROURACIL [Suspect]
     Route: 041
     Dates: start: 20080825, end: 20080825
  6. FLUOROURACIL [Suspect]
     Route: 041

REACTIONS (3)
  - ACUTE RESPIRATORY DISTRESS SYNDROME [None]
  - LUNG DISORDER [None]
  - TACHYARRHYTHMIA [None]
